FAERS Safety Report 9352308 (Version 1)
Quarter: 2013Q2

REPORT INFORMATION
  Report Type: Spontaneous
  Country: US (occurrence: US)
  Receive Date: 20130617
  Receipt Date: 20130617
  Transmission Date: 20140414
  Serious: No
  Sender: FDA-Public Use
  Company Number: US-PFIZER INC-2013181090

PATIENT
  Age: 92 Year
  Sex: Female
  Weight: 68.03 kg

DRUGS (1)
  1. TOVIAZ [Suspect]
     Indication: POLLAKIURIA
     Dosage: 4 MG, 1X/DAY
     Dates: start: 201303

REACTIONS (3)
  - Drug ineffective [Unknown]
  - Insomnia [Unknown]
  - Irritability [Unknown]
